FAERS Safety Report 9391903 (Version 1)
Quarter: 2013Q3

REPORT INFORMATION
  Report Type: Report from Study
  Country: CA (occurrence: CA)
  Receive Date: 20130709
  Receipt Date: 20130709
  Transmission Date: 20140515
  Serious: Yes (Hospitalization)
  Sender: FDA-Public Use
  Company Number: CA-ABBOTT-13P-028-1116250-00

PATIENT
  Sex: Male

DRUGS (4)
  1. HUMIRA [Suspect]
     Indication: CROHN^S DISEASE
     Route: 058
     Dates: start: 20080612, end: 20130701
  2. HUMIRA [Suspect]
     Indication: ANKYLOSING SPONDYLITIS
     Route: 058
     Dates: start: 201307
  3. UNKNOWN MEDICATION [Concomitant]
     Indication: ANKYLOSING SPONDYLITIS
  4. UNKNOWN MEDICATION [Concomitant]
     Indication: CROHN^S DISEASE

REACTIONS (1)
  - Intestinal obstruction [Unknown]
